FAERS Safety Report 7069292-7 (Version None)
Quarter: 2010Q4

REPORT INFORMATION
  Report Type: 
  Country: None (occurrence: None)
  Receive Date: 20101028
  Receipt Date: 20101021
  Transmission Date: 20110411
  Serious: Yes (Other)
  Sender: FDA-Public Use
  Company Number: US-BAXTER-2010BH026374

PATIENT
  Age: 68 Year
  Sex: Female

DRUGS (1)
  1. DIANEAL [Suspect]
     Indication: PERITONEAL DIALYSIS
     Route: 033
     Dates: start: 20070730

REACTIONS (4)
  - FUNGAL INFECTION [None]
  - INFUSION SITE INFECTION [None]
  - PERITONITIS [None]
  - WRONG TECHNIQUE IN DRUG USAGE PROCESS [None]
